FAERS Safety Report 4398157-4 (Version None)
Quarter: 2004Q3

REPORT INFORMATION
  Report Type: 
  Country: None (occurrence: None)
  Receive Date: 20040713
  Receipt Date: 20040630
  Transmission Date: 20050211
  Serious: Yes (Hospitalization, Disabling)
  Sender: FDA-Public Use
  Company Number: 2004221927JP

PATIENT
  Age: 29 Year
  Sex: Male

DRUGS (9)
  1. SOLU-MEDROL [Suspect]
     Indication: INTERSTITIAL LUNG DISEASE
     Dosage: SEE IMAGE
     Route: 042
     Dates: start: 20021118, end: 20021120
  2. SOLU-MEDROL [Suspect]
     Indication: INTERSTITIAL LUNG DISEASE
     Dosage: SEE IMAGE
     Route: 042
     Dates: start: 20021121, end: 20021122
  3. SOLU-MEDROL [Suspect]
     Indication: INTERSTITIAL LUNG DISEASE
     Dosage: SEE IMAGE
     Route: 042
     Dates: start: 20021123, end: 20021123
  4. SOLU-MEDROL [Suspect]
     Indication: INTERSTITIAL LUNG DISEASE
     Dosage: SEE IMAGE
     Route: 042
     Dates: start: 20021124, end: 20041126
  5. RITUXIMAB (RITUXIMAB) [Suspect]
     Indication: NON-HODGKIN'S LYMPHOMA
     Dosage: 650 MG, QD, 4 CYCLES, IV
     Route: 042
     Dates: start: 20020718, end: 20020808
  6. MEROPEN (MEROPENEM) [Concomitant]
  7. ITRACONAZOLE [Concomitant]
  8. BAKTAR [Concomitant]
  9. GASTER [Concomitant]

REACTIONS (6)
  - HERPES ZOSTER [None]
  - IMMUNOSUPPRESSION [None]
  - INTERSTITIAL LUNG DISEASE [None]
  - RETINAL DETACHMENT [None]
  - RETINAL INFARCTION [None]
  - VISUAL FIELD DEFECT [None]
